FAERS Safety Report 5475050-7 (Version None)
Quarter: 2007Q4

REPORT INFORMATION
  Report Type: 
  Country: None (occurrence: None)
  Receive Date: 20071002
  Receipt Date: 20070925
  Transmission Date: 20080405
  Serious: Yes (Hospitalization)
  Sender: FDA-Public Use
  Company Number: US-ELI_LILLY_AND_COMPANY-US200709005685

PATIENT
  Age: 51 Year
  Sex: Male

DRUGS (3)
  1. HUMULIN 70/30 [Suspect]
     Indication: DIABETES MELLITUS
     Dosage: 25 U, EACH MORNING
     Dates: start: 20060101
  2. HUMULIN 70/30 [Suspect]
     Dosage: 5 U, EACH EVENING
  3. HUMULIN R [Suspect]
     Indication: DIABETES MELLITUS
     Dosage: UNK, AS NEEDED

REACTIONS (2)
  - BLOOD GLUCOSE INCREASED [None]
  - GALLBLADDER DISORDER [None]
